FAERS Safety Report 15274307 (Version 2)
Quarter: 2018Q3

REPORT INFORMATION
  Report Type: Spontaneous
  Country: GB (occurrence: GB)
  Receive Date: 20180814
  Receipt Date: 20180814
  Transmission Date: 20181010
  Serious: Yes (Disabling, Other)
  Sender: FDA-Public Use
  Company Number: GB-AUROBINDO-AUR-APL-2018-041102

PATIENT
  Age: 61 Year
  Sex: Female
  Weight: 56.24 kg

DRUGS (2)
  1. ALENDRONIC ACID [Suspect]
     Active Substance: ALENDRONIC ACID
     Indication: OSTEOPENIA
     Dosage: 70 MILLIGRAM
     Route: 048
     Dates: start: 20180714, end: 20180714
  2. LANSOPRAZOLE. [Concomitant]
     Active Substance: LANSOPRAZOLE
     Indication: PRODUCT USED FOR UNKNOWN INDICATION
     Dosage: 15 MILLIGRAM
     Route: 065

REACTIONS (7)
  - Myalgia [Recovering/Resolving]
  - Muscular weakness [Unknown]
  - Malaise [Unknown]
  - Headache [Unknown]
  - Arthralgia [Recovering/Resolving]
  - Fatigue [Unknown]
  - Eye pain [Unknown]

NARRATIVE: CASE EVENT DATE: 20180715
